FAERS Safety Report 16643137 (Version 1)
Quarter: 2019Q3

REPORT INFORMATION
  Report Type: Spontaneous
  Country: US (occurrence: US)
  Receive Date: 20190729
  Receipt Date: 20190729
  Transmission Date: 20191004
  Serious: No
  Sender: FDA-Public Use
  Company Number: US-PFIZER INC-2019320634

PATIENT
  Age: 69 Year
  Sex: Female

DRUGS (2)
  1. XELJANZ [Suspect]
     Active Substance: TOFACITINIB CITRATE
     Dosage: 5 MG, 1X/DAY ((TAKE MED ONCE PER DAY RX SAYS TWICE A DAY)
     Dates: start: 20190703
  2. XELJANZ [Suspect]
     Active Substance: TOFACITINIB CITRATE
     Dosage: 5 MG, 2X/DAY (TAKE MED ONCE PER DAY RX SAYS TWICE A DAY)

REACTIONS (8)
  - Movement disorder [Unknown]
  - Pain [Unknown]
  - Appetite disorder [Unknown]
  - Loss of personal independence in daily activities [Unknown]
  - Depressed mood [Unknown]
  - Insomnia [Unknown]
  - Product prescribing error [Unknown]
  - Fatigue [Unknown]
